FAERS Safety Report 9419188 (Version 4)
Quarter: 2014Q1

REPORT INFORMATION
  Report Type: Report from Study
  Country: US (occurrence: US)
  Receive Date: 20130725
  Receipt Date: 20140226
  Transmission Date: 20141002
  Serious: Yes (Death, Hospitalization)
  Sender: FDA-Public Use
  Company Number: US-SANOFI-AVENTIS-2013SA074325

PATIENT
  Age: 58 Year
  Sex: Male

DRUGS (4)
  1. AUBAGIO [Suspect]
     Indication: MULTIPLE SCLEROSIS
     Route: 048
     Dates: start: 20130227, end: 201307
  2. AVONEX [Concomitant]
     Indication: MULTIPLE SCLEROSIS
     Dates: end: 2004
  3. NOVANTRONE [Concomitant]
     Indication: MULTIPLE SCLEROSIS
     Dates: start: 2002, end: 2004
  4. COPAXONE [Concomitant]
     Indication: MULTIPLE SCLEROSIS
     Dates: end: 2004

REACTIONS (4)
  - Pulmonary embolism [Fatal]
  - Affect lability [Not Recovered/Not Resolved]
  - Paraplegia [Fatal]
  - Dyspnoea [Fatal]
